FAERS Safety Report 6372760-4 (Version None)
Quarter: 2009Q3

REPORT INFORMATION
  Report Type: 
  Country: None (occurrence: None)
  Receive Date: 20090924
  Receipt Date: 20090225
  Transmission Date: 20100115
  Serious: Yes (Other)
  Sender: FDA-Public Use
  Company Number: US-ASTRAZENECA-2008UW24551

PATIENT
  Age: 43 Year
  Sex: Female
  Weight: 106.1 kg

DRUGS (5)
  1. SEROQUEL [Suspect]
     Indication: SCHIZOPHRENIA
     Dosage: 100 TO 200 MG
     Route: 048
     Dates: start: 20000117
  2. HALDOL [Concomitant]
     Dates: start: 20040101
  3. RISPERDAL [Concomitant]
     Dates: start: 20000525, end: 20001108
  4. ZYPREXA [Concomitant]
     Dates: start: 20010930, end: 20011011
  5. TRAZODONE [Concomitant]
     Dates: start: 20000305, end: 20011011

REACTIONS (9)
  - CARPAL TUNNEL SYNDROME [None]
  - CHEST PAIN [None]
  - DERMAL CYST [None]
  - DIABETES MELLITUS [None]
  - DIABETIC NEUROPATHY [None]
  - GASTRIC DISORDER [None]
  - OSTEOARTHRITIS [None]
  - PNEUMONIA [None]
  - REPRODUCTIVE TRACT DISORDER [None]
